FAERS Safety Report 7262927-5 (Version None)
Quarter: 2011Q1

REPORT INFORMATION
  Report Type: 
  Country: None (occurrence: None)
  Receive Date: 20110130
  Receipt Date: 20101015
  Transmission Date: 20110831
  Serious: No
  Sender: FDA-Public Use
  Company Number: US-ABBOTT-10P-163-0678659-00

PATIENT
  Age: 36 Year
  Sex: Female

DRUGS (2)
  1. UNKNOWN MEDICATION FOR SLEEP [Concomitant]
     Indication: INSOMNIA
  2. HUMIRA [Suspect]
     Indication: RHEUMATOID ARTHRITIS
     Dates: start: 20100917

REACTIONS (4)
  - RHINORRHOEA [None]
  - NASAL CONGESTION [None]
  - OROPHARYNGEAL PAIN [None]
  - RESPIRATORY TRACT CONGESTION [None]
